FAERS Safety Report 5873283-9 (Version None)
Quarter: 2008Q3

REPORT INFORMATION
  Report Type: 
  Country: None (occurrence: None)
  Receive Date: 20080904
  Receipt Date: 20070621
  Transmission Date: 20090109
  Serious: Yes (Other)
  Sender: FDA-Public Use
  Company Number: 2007-00581FE

PATIENT
  Sex: Female

DRUGS (1)
  1. LUTRELEF (LUTRELEF) (GONADORELIN ACETATE) [Suspect]
     Indication: INFERTILITY
     Dosage: IV
     Route: 042
     Dates: start: 20070604, end: 20070621

REACTIONS (1)
  - HYPERSENSITIVITY [None]
